FAERS Safety Report 17150116 (Version 1)
Quarter: 2019Q4

REPORT INFORMATION
  Report Type: Spontaneous
  Country: GB (occurrence: GB)
  Receive Date: 20191213
  Receipt Date: 20191213
  Transmission Date: 20200122
  Serious: Yes (Hospitalization)
  Sender: FDA-Public Use
  Company Number: GB-ACCORD-164438

PATIENT
  Age: 70 Year
  Sex: Female
  Weight: 63 kg

DRUGS (7)
  1. ROSUVASTATIN/ROSUVASTATIN CALCIUM [Concomitant]
     Active Substance: ROSUVASTATIN CALCIUM
  2. LANSOPRAZOLE. [Concomitant]
     Active Substance: LANSOPRAZOLE
  3. CISPLATIN. [Suspect]
     Active Substance: CISPLATIN
     Indication: PRODUCT USED FOR UNKNOWN INDICATION
     Dosage: FIRST TREATMENT ONLY
     Route: 042
     Dates: start: 20191021, end: 20191027
  4. VACCINIUM MACROCARPON [Concomitant]
     Active Substance: CRANBERRY
  5. VINORELBINE [Suspect]
     Active Substance: VINORELBINE TARTRATE
     Indication: PRODUCT USED FOR UNKNOWN INDICATION
     Dosage: FIRST TREATMENT ONLY
     Route: 042
     Dates: start: 20191021, end: 20191027
  6. CETIRIZINE [Concomitant]
     Active Substance: CETIRIZINE HYDROCHLORIDE
  7. VITAMINS NOS [Concomitant]
     Active Substance: VITAMINS

REACTIONS (2)
  - Abdominal pain upper [Not Recovered/Not Resolved]
  - Reflux gastritis [Not Recovered/Not Resolved]

NARRATIVE: CASE EVENT DATE: 20191025
